FAERS Safety Report 22245830 (Version 2)
Quarter: 2023Q2

REPORT INFORMATION
  Report Type: Spontaneous
  Country: GB (occurrence: GB)
  Receive Date: 20230424
  Receipt Date: 20230430
  Transmission Date: 20230721
  Serious: Yes (Other)
  Sender: FDA-Public Use
  Company Number: GB-MHRA-MED-202304130857285110-CMQKV

PATIENT
  Sex: Female

DRUGS (1)
  1. FEXOFENADINE [Suspect]
     Active Substance: FEXOFENADINE HYDROCHLORIDE
     Indication: Product used for unknown indication
     Dates: start: 20230407

REACTIONS (5)
  - Dizziness [Recovering/Resolving]
  - Fatigue [Recovering/Resolving]
  - Palpitations [Recovering/Resolving]
  - Fatigue [Unknown]
  - Medication error [Unknown]

NARRATIVE: CASE EVENT DATE: 20230409
